FAERS Safety Report 17840634 (Version 3)
Quarter: 2020Q3

REPORT INFORMATION
  Report Type: Report from Study
  Country: DE (occurrence: CO)
  Receive Date: 20200529
  Receipt Date: 20200714
  Transmission Date: 20201103
  Serious: Yes (Hospitalization)
  Sender: FDA-Public Use
  Company Number: CO-ELI_LILLY_AND_COMPANY-CO202005011004

PATIENT
  Age: 53 Year
  Sex: Male

DRUGS (3)
  1. CETUXIMAB. [Suspect]
     Active Substance: CETUXIMAB
     Dosage: 400 MG, 2/M
     Route: 065
     Dates: start: 20200427, end: 202005
  2. CETUXIMAB. [Suspect]
     Active Substance: CETUXIMAB
     Indication: SALIVARY GLAND CANCER
     Dosage: 400 MG, 2/M
     Route: 065
     Dates: start: 20200315
  3. CETUXIMAB. [Suspect]
     Active Substance: CETUXIMAB
     Dosage: 400 MG, 2/M
     Route: 065

REACTIONS (4)
  - Stomatitis [Recovered/Resolved]
  - Pyrexia [Recovered/Resolved]
  - Off label use [Unknown]
  - Skin injury [Recovered/Resolved]

NARRATIVE: CASE EVENT DATE: 202005
